FAERS Safety Report 6555700-4 (Version None)
Quarter: 2010Q1

REPORT INFORMATION
  Report Type: 
  Country: None (occurrence: None)
  Receive Date: 20100125
  Receipt Date: 20100108
  Transmission Date: 20100710
  Serious: Yes (Other)
  Sender: FDA-Public Use
  Company Number: 07-AUR-00743

PATIENT
  Age: 88 Year

DRUGS (3)
  1. AMOXICILLIN [Suspect]
     Dosage: 500MG
  2. CLARITHROMYCIN [Suspect]
     Dosage: 500MG
  3. LANSOPRAZOLE [Suspect]
     Dosage: 30MG

REACTIONS (3)
  - ADVERSE EVENT [None]
  - IMMUNE SYSTEM DISORDER [None]
  - WEIGHT DECREASED [None]
